FAERS Safety Report 6979355-X (Version None)
Quarter: 2010Q3

REPORT INFORMATION
  Report Type: 
  Country: None (occurrence: None)
  Receive Date: 20100913
  Receipt Date: 20100428
  Transmission Date: 20110219
  Serious: Yes (Other)
  Sender: FDA-Public Use
  Company Number: US-BAYER-201013225NA

PATIENT
  Sex: Female
  Weight: 98 kg

DRUGS (9)
  1. YAZ [Suspect]
     Indication: PRODUCT USED FOR UNKNOWN INDICATION
  2. YASMIN [Suspect]
     Indication: CONTRACEPTION
     Route: 048
  3. THYROID SUPPLEMENTATION [Concomitant]
  4. RANITIDINE [Concomitant]
     Indication: GASTROINTESTINAL DISORDER
     Route: 065
  5. SEROQUEL [Concomitant]
  6. LITHIUM CARBONATE [Concomitant]
     Route: 065
  7. TOPAMAX [Concomitant]
     Route: 065
  8. TRAZODONE HCL [Concomitant]
     Dosage: DOSE: 1 1/2 AT BED TIME
     Route: 065
  9. LEVOTHYROXINE [Concomitant]
     Route: 065

REACTIONS (2)
  - GALLBLADDER DISORDER [None]
  - PANCREATITIS [None]
